FAERS Safety Report 4334193-1 (Version None)
Quarter: 2004Q2

REPORT INFORMATION
  Report Type: 
  Country: None (occurrence: None)
  Receive Date: 20040402
  Receipt Date: 20040324
  Transmission Date: 20050107
  Serious: Yes (Hospitalization)
  Sender: FDA-Public Use
  Company Number: 04-03-0431

PATIENT
  Age: 78 Year
  Sex: Male

DRUGS (11)
  1. QVAR [Suspect]
     Indication: ASTHMA
     Dosage: 100MCG INHALATION
     Route: 055
     Dates: start: 20030704, end: 20031027
  2. THEOLONG [Concomitant]
  3. MEDICON [Concomitant]
  4. BROCIN-CODEINE [Concomitant]
  5. SPIROPENT [Concomitant]
  6. SEREVENT [Concomitant]
  7. SULPERAZON [Concomitant]
  8. KEITEN [Concomitant]
  9. ISEPACIN [Concomitant]
  10. PRIMAXIN [Concomitant]
  11. DIFLUCAN [Concomitant]

REACTIONS (3)
  - CANDIDA PNEUMONIA [None]
  - PSEUDOMONAS INFECTION [None]
  - SERRATIA INFECTION [None]
